FAERS Safety Report 24773603 (Version 1)
Quarter: 2024Q4

REPORT INFORMATION
  Report Type: Report from Study
  Country: CA (occurrence: CA)
  Receive Date: 20241225
  Receipt Date: 20241225
  Transmission Date: 20250114
  Serious: Yes (Other)
  Sender: AMGEN
  Company Number: CA-AMGEN-CANSL2023128415

PATIENT
  Age: 74 Year
  Sex: Male

DRUGS (3)
  1. AVSOLA [Suspect]
     Active Substance: INFLIXIMAB-AXXQ
     Indication: Colitis ulcerative
     Dosage: 800 MILLIGRAM, Q6WK
     Route: 065
     Dates: start: 20220222
  2. AVSOLA [Suspect]
     Active Substance: INFLIXIMAB-AXXQ
     Dosage: 800 MILLIGRAM, Q6WK
     Route: 065
  3. AVSOLA [Suspect]
     Active Substance: INFLIXIMAB-AXXQ
     Dosage: 7.5 MILLIGRAM/KILOGRAM, Q6WK
     Route: 065

REACTIONS (7)
  - Inflammatory bowel disease [Unknown]
  - Steatorrhoea [Unknown]
  - Off label use [Unknown]
  - Flatulence [Unknown]
  - Weight decreased [Unknown]
  - Diarrhoea [Recovered/Resolved]
  - Abdominal pain [Recovered/Resolved]

NARRATIVE: CASE EVENT DATE: 20220222
